FAERS Safety Report 6675324-8 (Version None)
Quarter: 2010Q2

REPORT INFORMATION
  Report Type: 
  Country: None (occurrence: None)
  Receive Date: 20100409
  Receipt Date: 20100304
  Transmission Date: 20101027
  Serious: No
  Sender: FDA-Public Use
  Company Number: A0843753A

PATIENT
  Age: 65 Year
  Sex: Female

DRUGS (13)
  1. TYKERB [Suspect]
     Indication: BREAST CANCER
     Dosage: 1250MG PER DAY
     Route: 048
     Dates: start: 20100204
  2. XELODA [Concomitant]
     Route: 048
     Dates: start: 20100105
  3. PHENERGAN [Concomitant]
  4. MORPHINE [Concomitant]
  5. OXYCODONE [Concomitant]
  6. XANAX [Concomitant]
  7. UNSPECIFIED MEDICATION [Concomitant]
  8. ADVAIR DISKUS 100/50 [Concomitant]
  9. SENOKOT [Concomitant]
  10. STOOL SOFTENER [Concomitant]
  11. SPIRIVA [Concomitant]
  12. NEXIUM [Concomitant]
  13. MINERAL OIL [Concomitant]

REACTIONS (1)
  - DIARRHOEA [None]
